FAERS Safety Report 15389589 (Version 2)
Quarter: 2018Q3

REPORT INFORMATION
  Report Type: Spontaneous
  Country: US (occurrence: US)
  Receive Date: 20180917
  Receipt Date: 20180917
  Transmission Date: 20181010
  Serious: No
  Sender: FDA-Public Use
  Company Number: US-LUPIN PHARMACEUTICALS INC.-2018-00616

PATIENT
  Age: 61 Year
  Sex: Female
  Weight: 66.21 kg

DRUGS (2)
  1. CEFUROXIME. [Suspect]
     Active Substance: CEFUROXIME
     Indication: PHARYNGITIS STREPTOCOCCAL
  2. CEFUROXIME. [Suspect]
     Active Substance: CEFUROXIME
     Indication: TONSILLITIS STREPTOCOCCAL
     Dosage: 500 MG, BID
     Route: 048
     Dates: start: 20180124

REACTIONS (4)
  - Dysphagia [Not Recovered/Not Resolved]
  - Product commingling [Unknown]
  - Wrong technique in product usage process [Unknown]
  - Wrong drug administered [Unknown]

NARRATIVE: CASE EVENT DATE: 20180124
